FAERS Safety Report 14380673 (Version 1)
Quarter: 2018Q1

REPORT INFORMATION
  Report Type: Spontaneous
  Country: CN (occurrence: CN)
  Receive Date: 20180112
  Receipt Date: 20180112
  Transmission Date: 20180509
  Serious: Yes (Hospitalization, Other)
  Sender: FDA-Public Use
  Company Number: CN-ABBVIE-18P-035-2220349-00

PATIENT
  Age: 30 Year
  Sex: Male

DRUGS (5)
  1. INVEGA [Suspect]
     Active Substance: PALIPERIDONE
     Indication: BIPOLAR DISORDER
     Dosage: EXTENDED RELEASE
     Route: 048
     Dates: start: 20171018, end: 20171027
  2. LITHIUM CARBONATE. [Concomitant]
     Active Substance: LITHIUM CARBONATE
     Indication: PRODUCT USED FOR UNKNOWN INDICATION
     Dates: start: 20171017
  3. INVEGA [Suspect]
     Active Substance: PALIPERIDONE
     Dosage: EVERY 3 DAYS
     Route: 030
     Dates: start: 20171023, end: 20171023
  4. CLOZAPINE. [Concomitant]
     Active Substance: CLOZAPINE
     Indication: PRODUCT USED FOR UNKNOWN INDICATION
     Dates: start: 20171017, end: 20171024
  5. DEPAKINE CHRONO [Suspect]
     Active Substance: VALPROATE SODIUM
     Indication: BIPOLAR DISORDER
     Dosage: EXTENDED RELEASE
     Route: 048
     Dates: start: 20171017, end: 20171027

REACTIONS (5)
  - Dystonia [Recovering/Resolving]
  - Extrapyramidal disorder [Recovering/Resolving]
  - Dysphagia [Recovering/Resolving]
  - Restlessness [Recovering/Resolving]
  - Hepatic function abnormal [Recovering/Resolving]

NARRATIVE: CASE EVENT DATE: 20171027
